FAERS Safety Report 4586489-6 (Version None)
Quarter: 2005Q1

REPORT INFORMATION
  Report Type: 
  Country: None (occurrence: None)
  Receive Date: 20050218
  Receipt Date: 20050208
  Transmission Date: 20050727
  Serious: Yes (Hospitalization, Disabling)
  Sender: FDA-Public Use
  Company Number: US-ROCHE-394881

PATIENT
  Sex: Female

DRUGS (1)
  1. ACCUTANE [Suspect]
     Indication: DRUG USE FOR UNKNOWN INDICATION
     Route: 048
     Dates: start: 20040415

REACTIONS (7)
  - CARDIOVASCULAR DISORDER [None]
  - GASTROINTESTINAL DISORDER [None]
  - HEPATOCELLULAR DAMAGE [None]
  - IMMUNE SYSTEM DISORDER [None]
  - INFLAMMATORY BOWEL DISEASE [None]
  - POLYTRAUMATISM [None]
  - VISUAL ACUITY REDUCED [None]
